FAERS Safety Report 5760908-1 (Version None)
Quarter: 2008Q2

REPORT INFORMATION
  Report Type: 
  Country: None (occurrence: None)
  Receive Date: 20080606
  Receipt Date: 20080606
  Transmission Date: 20081010
  Serious: Yes (Life-Threatening, Hospitalization, Disabling, Other)
  Sender: FDA-Public Use
  Company Number: None

PATIENT
  Age: 54 Year
  Sex: Male
  Weight: 92.9874 kg

DRUGS (1)
  1. HEPARIN [Suspect]
     Indication: ANGIOPLASTY
     Dates: start: 19950201

REACTIONS (5)
  - GROIN INFECTION [None]
  - HEPARIN-INDUCED THROMBOCYTOPENIA [None]
  - ISCHAEMIA [None]
  - LEG AMPUTATION [None]
  - WOUND INFECTION [None]
